FAERS Safety Report 10224075 (Version 1)
Quarter: 2014Q2

REPORT INFORMATION
  Report Type: Spontaneous
  Country: DK (occurrence: NL)
  Receive Date: 20140609
  Receipt Date: 20140609
  Transmission Date: 20141212
  Serious: Yes (Other)
  Sender: FDA-Public Use
  Company Number: NL-FRI-1000067925

PATIENT
  Age: 28 Year
  Sex: Female

DRUGS (10)
  1. CITALOPRAM [Suspect]
     Indication: DEPRESSION
     Route: 048
     Dates: start: 20101130
  2. CITALOPRAM [Suspect]
     Dosage: 40 MG
     Route: 048
     Dates: start: 201404
  3. CITALOPRAM [Suspect]
     Dosage: 30 MG
     Route: 048
     Dates: start: 201404
  4. CITALOPRAM [Suspect]
     Dosage: 20 MG
     Route: 048
     Dates: start: 201404
  5. WELLBUTRIN XR [Suspect]
     Indication: DEPRESSION
     Dosage: 300 MG
     Route: 048
     Dates: start: 20130829, end: 20140401
  6. WELLBUTRIN XR [Suspect]
     Dosage: 450 MG
     Route: 048
     Dates: start: 20140402
  7. SEROQUEL XR [Suspect]
     Indication: DEPRESSION
     Dosage: 150 MG
     Route: 048
     Dates: start: 20140305, end: 201404
  8. SEROQUEL XR [Suspect]
     Dosage: 50 MG
     Route: 048
     Dates: start: 201404
  9. ETHINYLESTRADIOL/LEVONORGESTREL 30/150 ?G [Concomitant]
     Route: 048
     Dates: start: 20080101
  10. NITRAZEPAM [Concomitant]
     Dosage: 5 MG
     Route: 048
     Dates: start: 20140228

REACTIONS (1)
  - Epilepsy [Recovered/Resolved]
